FAERS Safety Report 22306345 (Version 1)
Quarter: 2023Q2

REPORT INFORMATION
  Report Type: Spontaneous
  Country: GB (occurrence: GB)
  Receive Date: 20230511
  Receipt Date: 20230511
  Transmission Date: 20230721
  Serious: No
  Sender: FDA-Public Use
  Company Number: None

PATIENT
  Sex: Female

DRUGS (2)
  1. FLUDEOXYGLUCOSE F-18 [Suspect]
     Active Substance: FLUDEOXYGLUCOSE F-18
     Indication: Positron emission tomogram
     Dosage: 390 MEGABECQUEREL, SINGLE
     Route: 065
     Dates: start: 20220811, end: 20220811
  2. IODINE [Suspect]
     Active Substance: IODINE
     Indication: Computerised tomogram thorax
     Dosage: UNK
     Route: 065
     Dates: start: 20220811, end: 20220811

REACTIONS (1)
  - Rash erythematous [Recovered/Resolved]

NARRATIVE: CASE EVENT DATE: 20220811
